FAERS Safety Report 8586544-X (Version None)
Quarter: 2012Q3

REPORT INFORMATION
  Report Type: 
  Country: None (occurrence: None)
  Receive Date: 20120730
  Receipt Date: 20120723
  Transmission Date: 20120928
  Serious: Yes (Hospitalization)
  Sender: FDA-Public Use
  Company Number: FR-GDP-12414510

PATIENT
  Sex: Female
  Weight: 63 kg

DRUGS (7)
  1. TETRALYSAL (LYMECYCLINE) (300 MG, 300 MG) [Suspect]
     Indication: ACNE
     Dosage: (300 MG QD ORAL), (300 MG QD, ORAL)
     Route: 048
     Dates: start: 20120608, end: 20120617
  2. TETRALYSAL (LYMECYCLINE) (300 MG, 300 MG) [Suspect]
     Indication: ACNE
     Dosage: (300 MG QD ORAL), (300 MG QD, ORAL)
     Route: 048
     Dates: start: 20120623, end: 20120624
  3. EUPHYTOSE [Concomitant]
  4. ADAPALENE [Suspect]
     Indication: PRODUCT USED FOR UNKNOWN INDICATION
     Dosage: TOPICAL
     Route: 061
  5. ERYFLUID [Concomitant]
  6. ACETAMINOPHEN [Concomitant]
  7. CUTACNYL (BENZOYL PEROXIDE) [Suspect]
     Indication: PRODUCT USED FOR UNKNOWN INDICATION
     Dosage: TOPICAL
     Route: 061

REACTIONS (11)
  - MYALGIA [None]
  - SYSTEMIC INFLAMMATORY RESPONSE SYNDROME [None]
  - ARTHRALGIA [None]
  - RASH [None]
  - ODYNOPHAGIA [None]
  - HEADACHE [None]
  - HYPERTHERMIA [None]
  - HAEMATURIA [None]
  - DRUG-INDUCED LIVER INJURY [None]
  - GENERAL PHYSICAL HEALTH DETERIORATION [None]
  - PYREXIA [None]
